FAERS Safety Report 5188855-7 (Version None)
Quarter: 2006Q4

REPORT INFORMATION
  Report Type: 
  Country: None (occurrence: None)
  Receive Date: 20061221
  Receipt Date: 20061218
  Transmission Date: 20070319
  Serious: Yes (Life-Threatening)
  Sender: FDA-Public Use
  Company Number: US-ROXANE LABORATORIES, INC-2006-DE-06731GD

PATIENT
  Age: 76 Year
  Sex: Male

DRUGS (11)
  1. SERTRALINE [Suspect]
     Indication: MAJOR DEPRESSION
  2. ZOLPIDEM TARTRATE [Suspect]
     Indication: MAJOR DEPRESSION
  3. CLONAZEPAM [Suspect]
     Indication: MAJOR DEPRESSION
  4. ZIPRASIDONE HCL [Suspect]
     Indication: MAJOR DEPRESSION
  5. ASPIRIN [Concomitant]
  6. MIRTAZAPINE [Concomitant]
  7. OLANZAPINE [Concomitant]
  8. LEVOFLOXACIN [Concomitant]
     Indication: UPPER RESPIRATORY TRACT INFECTION
  9. ISOSORBIDE MONONITRATE [Concomitant]
  10. METOPROLOL SUCCINATE [Concomitant]
  11. ENALAPRIL MALEATE [Concomitant]

REACTIONS (8)
  - ACUTE MYOCARDIAL INFARCTION [None]
  - CATATONIA [None]
  - DEHYDRATION [None]
  - MENTAL STATUS CHANGES [None]
  - PSYCHOTIC DISORDER [None]
  - SINUS BRADYCARDIA [None]
  - SYNCOPE [None]
  - UPPER RESPIRATORY TRACT INFECTION [None]
